FAERS Safety Report 6239913-7 (Version None)
Quarter: 2009Q2

REPORT INFORMATION
  Report Type: 
  Country: None (occurrence: None)
  Receive Date: 20090618
  Receipt Date: 20090618
  Transmission Date: 20091009
  Serious: No
  Sender: FDA-Public Use
  Company Number: None

PATIENT
  Age: 65 Year
  Sex: Female
  Weight: 58.9676 kg

DRUGS (1)
  1. ZICAM NASAL SPRAY [Suspect]
     Indication: NASAL CONGESTION
     Dosage: ONE DOSE
     Dates: start: 20071220, end: 20071220

REACTIONS (3)
  - DYSGEUSIA [None]
  - HYPOGEUSIA [None]
  - NASAL DISCOMFORT [None]
